FAERS Safety Report 14921307 (Version 1)
Quarter: 2018Q2

REPORT INFORMATION
  Report Type: Spontaneous
  Country: US (occurrence: US)
  Receive Date: 20180522
  Receipt Date: 20180522
  Transmission Date: 20180711
  Serious: No
  Sender: FDA-Public Use
  Company Number: US-BIOGEN-2018BI00579494

PATIENT
  Sex: Female

DRUGS (1)
  1. TYSABRI [Suspect]
     Active Substance: NATALIZUMAB
     Indication: MULTIPLE SCLEROSIS
     Route: 065
     Dates: start: 20170502, end: 20180302

REACTIONS (4)
  - Fall [Recovered/Resolved]
  - Drug ineffective [Unknown]
  - Multiple sclerosis relapse [Recovered/Resolved]
  - Upper limb fracture [Unknown]
